FAERS Safety Report 21089033 (Version 2)
Quarter: 2022Q3

REPORT INFORMATION
  Report Type: Spontaneous
  Country: US (occurrence: US)
  Receive Date: 20220715
  Receipt Date: 20220819
  Transmission Date: 20221027
  Serious: Yes (Disabling, Other)
  Sender: FDA-Public Use
  Company Number: US-SA-SAC20220711001688

PATIENT
  Age: 67 Year
  Sex: Male

DRUGS (1)
  1. ZANTAC [Suspect]
     Active Substance: RANITIDINE HYDROCHLORIDE
     Dosage: 150 MG, QD(TABLET)
     Route: 048
     Dates: start: 200701, end: 201901

REACTIONS (5)
  - Colorectal cancer [Unknown]
  - Disability [Unknown]
  - Anhedonia [Unknown]
  - Pain [Unknown]
  - Anxiety [Unknown]

NARRATIVE: CASE EVENT DATE: 20190101
